FAERS Safety Report 24996543 (Version 3)
Quarter: 2025Q1

REPORT INFORMATION
  Report Type: Spontaneous
  Country: US (occurrence: US)
  Receive Date: 20250221
  Receipt Date: 20250313
  Transmission Date: 20250409
  Serious: No
  Sender: CALLIDITAS THERAPEUTICS AB
  Company Number: US-Calliditas-2025CAL00396

PATIENT
  Age: 74 Year
  Sex: Male

DRUGS (1)
  1. TARPEYO [Suspect]
     Active Substance: BUDESONIDE
     Indication: IgA nephropathy
     Route: 048
     Dates: start: 20240307, end: 20241218

REACTIONS (8)
  - Insomnia [Unknown]
  - Arthralgia [Not Recovered/Not Resolved]
  - Alopecia [Unknown]
  - Sexual dysfunction [Unknown]
  - Eyeglasses therapy [Unknown]
  - Skin haemorrhage [Unknown]
  - Asthenia [Not Recovered/Not Resolved]
  - Ligament pain [Not Recovered/Not Resolved]

NARRATIVE: CASE EVENT DATE: 20241218
